FAERS Safety Report 11131693 (Version 1)
Quarter: 2015Q2

REPORT INFORMATION
  Report Type: Spontaneous
  Country: SE (occurrence: SE)
  Receive Date: 20150522
  Receipt Date: 20150522
  Transmission Date: 20150821
  Serious: Yes (Hospitalization)
  Sender: FDA-Public Use
  Company Number: SE-GE HEALTHCARE MEDICAL DIAGNOSTICS-OMPQ-E2B_00000122

PATIENT
  Age: 73 Year
  Sex: Male

DRUGS (9)
  1. PLENDIL [Concomitant]
     Active Substance: FELODIPINE
  2. OMNIPAQUE [Suspect]
     Active Substance: IOHEXOL
     Indication: DIAGNOSTIC PROCEDURE
  3. ACTILYSE [Suspect]
     Active Substance: ALTEPLASE
     Indication: THROMBOTIC CEREBRAL INFARCTION
     Dates: start: 20150404
  4. ENALAPRIL [Concomitant]
     Active Substance: ENALAPRIL
  5. OMNIPAQUE [Suspect]
     Active Substance: IOHEXOL
     Indication: PRODUCT USED FOR UNKNOWN INDICATION
     Route: 065
     Dates: start: 20150404, end: 20150404
  6. BEHEPAN [Concomitant]
     Active Substance: HYDROXOCOBALAMIN
  7. SIMVASTATIN. [Concomitant]
     Active Substance: SIMVASTATIN
  8. TROMBYL [Concomitant]
     Active Substance: ASPIRIN
  9. PERSANTINE [Concomitant]
     Active Substance: DIPYRIDAMOLE

REACTIONS (2)
  - Swollen tongue [Recovered/Resolved]
  - Anaphylactic reaction [Recovered/Resolved]

NARRATIVE: CASE EVENT DATE: 20150404
